FAERS Safety Report 4739405-8 (Version None)
Quarter: 2005Q3

REPORT INFORMATION
  Report Type: 
  Country: None (occurrence: None)
  Receive Date: 20050810
  Receipt Date: 20050126
  Transmission Date: 20060218
  Serious: Yes (Hospitalization)
  Sender: FDA-Public Use
  Company Number: US-GLAXOSMITHKLINE-A0542426A

PATIENT
  Sex: Female

DRUGS (6)
  1. PAXIL [Suspect]
     Indication: DEPRESSION
     Dosage: 20MG UNKNOWN
     Route: 048
  2. NEURONTIN [Concomitant]
  3. DIABETA [Concomitant]
  4. GLUCOPHAGE [Concomitant]
  5. LASIX [Concomitant]
  6. AMITRIPTYLINE [Concomitant]

REACTIONS (5)
  - CRYING [None]
  - DEPRESSION [None]
  - DRUG WITHDRAWAL SYNDROME [None]
  - HEADACHE [None]
  - VOMITING [None]
